FAERS Safety Report 19551707 (Version 1)
Quarter: 2021Q3

REPORT INFORMATION
  Report Type: Spontaneous
  Country: US (occurrence: US)
  Receive Date: 20210715
  Receipt Date: 20210715
  Transmission Date: 20211014
  Serious: No
  Sender: FDA-Public Use
  Company Number: US-ACCORD-202860

PATIENT
  Age: 1 Year
  Sex: Female

DRUGS (1)
  1. LETROZOLE ACCORD [Suspect]
     Active Substance: LETROZOLE
     Indication: PRODUCT USED FOR UNKNOWN INDICATION
     Dosage: STRENGTH: 2.5 MG, 3 TABLETS A DAY
     Dates: start: 20200803, end: 20200807

REACTIONS (8)
  - Rash pruritic [Not Recovered/Not Resolved]
  - Sensitive skin [Unknown]
  - Condition aggravated [Unknown]
  - Weight increased [Unknown]
  - Urticaria [Unknown]
  - Hot flush [Not Recovered/Not Resolved]
  - Rash [Not Recovered/Not Resolved]
  - Stress [Unknown]

NARRATIVE: CASE EVENT DATE: 20200810
